FAERS Safety Report 21087994 (Version 2)
Quarter: 2022Q3

REPORT INFORMATION
  Report Type: Spontaneous
  Country: JP (occurrence: JP)
  Receive Date: 20220715
  Receipt Date: 20220825
  Transmission Date: 20221027
  Serious: Yes (Other)
  Sender: FDA-Public Use
  Company Number: JP-GLAXOSMITHKLINE-JP2022JPN105115

PATIENT

DRUGS (2)
  1. ZOVIRAX [Suspect]
     Active Substance: ACYCLOVIR
     Indication: Herpes simplex meningitis
     Dosage: 15 MG/KG, TID
     Route: 041
  2. ZOVIRAX [Suspect]
     Active Substance: ACYCLOVIR
     Indication: Herpes simplex encephalitis

REACTIONS (27)
  - Nephropathy toxic [Recovered/Resolved]
  - Obstructive nephropathy [Recovered/Resolved]
  - Ascites [Unknown]
  - Dermatitis exfoliative generalised [Unknown]
  - Renal tubular disorder [Unknown]
  - Tubulointerstitial nephritis [Unknown]
  - Micturition frequency decreased [Unknown]
  - Abdominal pain [Recovering/Resolving]
  - Pyrexia [Recovered/Resolved]
  - Cough [Recovered/Resolved]
  - Cardiomegaly [Unknown]
  - Pleural effusion [Unknown]
  - Oedema peripheral [Unknown]
  - Eyelid oedema [Unknown]
  - Weight increased [Recovered/Resolved]
  - Fluid retention [Unknown]
  - Rash pruritic [Unknown]
  - Hyposthenuria [Unknown]
  - Pyuria [Recovered/Resolved]
  - Proteinuria [Recovered/Resolved]
  - Drug eruption [Unknown]
  - Rash [Recovered/Resolved]
  - Oedema [Recovering/Resolving]
  - Hypophosphataemia [Unknown]
  - Blood pressure increased [Recovered/Resolved]
  - Haematuria [Unknown]
  - Leukocyturia [Unknown]
